FAERS Safety Report 20561860 (Version 1)
Quarter: 2022Q1

REPORT INFORMATION
  Report Type: Spontaneous
  Country: US (occurrence: None)
  Receive Date: 20220305
  Receipt Date: 20220305
  Transmission Date: 20220423
  Serious: Yes (Hospitalization)
  Sender: FDA-Public Use
  Company Number: None

PATIENT
  Age: 25 Year
  Sex: Female
  Weight: 101.25 kg

DRUGS (4)
  1. WEGOVY [Suspect]
     Active Substance: SEMAGLUTIDE
     Indication: Weight decreased
     Dosage: OTHER FREQUENCY : ONCE A WEEK;?
     Dates: start: 20210901, end: 20220221
  2. 60mg duloxetine [Concomitant]
  3. 150mg bupropion XL [Concomitant]
  4. 100mg metoprolol [Concomitant]

REACTIONS (4)
  - Constipation [None]
  - Vomiting [None]
  - Gastrointestinal infection [None]
  - Oesophageal disorder [None]

NARRATIVE: CASE EVENT DATE: 20220221
